FAERS Safety Report 11086971 (Version 1)
Quarter: 2015Q2

REPORT INFORMATION
  Report Type: Spontaneous
  Country: US (occurrence: None)
  Receive Date: 20150501
  Receipt Date: 20150501
  Transmission Date: 20150821
  Serious: Yes (Disabling)
  Sender: FDA-Public Use
  Company Number: None

PATIENT
  Age: 33 Year
  Sex: Female

DRUGS (9)
  1. OMEPRAZOLE. [Concomitant]
     Active Substance: OMEPRAZOLE
  2. NORCO [Concomitant]
     Active Substance: ACETAMINOPHEN\HYDROCODONE BITARTRATE
  3. BENZONATATE. [Concomitant]
     Active Substance: BENZONATATE
  4. CIPRO [Suspect]
     Active Substance: CIPROFLOXACIN HYDROCHLORIDE
     Indication: LUNG INFECTION
  5. ARIZONA BRACE [Concomitant]
  6. MOTRIN 800 [Concomitant]
  7. GABAPENTIN. [Concomitant]
     Active Substance: GABAPENTIN
  8. COMPRESSION STOCKINGS [Concomitant]
  9. ZOHYDRO [Concomitant]
     Active Substance: HYDROCODONE BITARTRATE

REACTIONS (2)
  - Pain in extremity [None]
  - Back pain [None]
